FAERS Safety Report 8241261-0 (Version None)
Quarter: 2012Q1

REPORT INFORMATION
  Report Type: 
  Country: None (occurrence: None)
  Receive Date: 20120328
  Receipt Date: 20120323
  Transmission Date: 20120608
  Serious: Yes (Other)
  Sender: FDA-Public Use
  Company Number: US-PFIZER INC-2012076142

PATIENT
  Sex: Male

DRUGS (1)
  1. PRISTIQ [Suspect]
     Dosage: UNK

REACTIONS (3)
  - WITHDRAWAL SYNDROME [None]
  - CHILLS [None]
  - PANIC ATTACK [None]
